FAERS Safety Report 5811026-5 (Version None)
Quarter: 2008Q3

REPORT INFORMATION
  Report Type: 
  Country: None (occurrence: None)
  Receive Date: 20080710
  Receipt Date: 20080703
  Transmission Date: 20090109
  Serious: Yes (Death)
  Sender: FDA-Public Use
  Company Number: 2005JP002196

PATIENT
  Age: 55 Year
  Sex: Male

DRUGS (6)
  1. PROGRAF [Suspect]
     Indication: LIVER TRANSPLANT
  2. ENDOXAN (CYCLOPHOSPHAMIDE) FORMULATION UNKNOWN [Concomitant]
  3. CELLCEPT [Concomitant]
  4. PGE 1 (ALPROSTADIL) FORMULATION UNKNOWN [Concomitant]
  5. FRAGMIN (DALTEPARIN SODIUM) FORMULATION UNKNOWN [Concomitant]
  6. THYMOGLOBULIN (ANTIHYMOCYTE IMMUNOGLOBULIN) FORMULATION UNKNOWN [Concomitant]

REACTIONS (5)
  - CATHETER RELATED INFECTION [None]
  - CHOLANGITIS [None]
  - LIVER TRANSPLANT [None]
  - SEPSIS [None]
  - STAPHYLOCOCCAL INFECTION [None]
